FAERS Safety Report 4522011-8 (Version None)
Quarter: 2004Q4

REPORT INFORMATION
  Report Type: 
  Country: None (occurrence: None)
  Receive Date: 20041207
  Receipt Date: 20041207
  Transmission Date: 20050328
  Serious: Yes (Hospitalization)
  Sender: FDA-Public Use
  Company Number: None

PATIENT
  Sex: Male

DRUGS (18)
  1. COUMADIN [Suspect]
     Indication: HYPERCOAGULATION
     Dosage: 3 MG/1.5 MG  MON/REST ORAL
     Route: 048
  2. APAP TAB [Concomitant]
  3. COMBIVENT [Concomitant]
  4. ATAZANAVIR [Concomitant]
  5. CLOPIDOGREL [Concomitant]
  6. DAPSONE [Concomitant]
  7. DIGOXIN [Concomitant]
  8. EPOGEN [Concomitant]
  9. FERROUS SULFATE TAB [Concomitant]
  10. KETOCONAZOLE [Concomitant]
  11. INSULIN [Concomitant]
  12. LAMIVUDINE/ZIDOVUDINE [Concomitant]
  13. LOVASTATIN [Concomitant]
  14. METOPROLOL [Concomitant]
  15. MIRTAZAPINE [Concomitant]
  16. OMEPRAZOLE [Concomitant]
  17. OXYCODONE HCL [Concomitant]
  18. SENNA [Concomitant]

REACTIONS (3)
  - HAEMATOCRIT DECREASED [None]
  - HAEMOGLOBIN DECREASED [None]
  - INTERNATIONAL NORMALISED RATIO INCREASED [None]
